FAERS Safety Report 14103301 (Version 2)
Quarter: 2019Q4

REPORT INFORMATION
  Report Type: Spontaneous
  Country: US (occurrence: US)
  Receive Date: 20171018
  Receipt Date: 20191018
  Transmission Date: 20200122
  Serious: Yes (Death)
  Sender: FDA-Public Use
  Company Number: US-PFIZER INC-2017447574

PATIENT
  Age: 61 Year
  Sex: Male

DRUGS (13)
  1. LEVITRA [Suspect]
     Active Substance: VARDENAFIL HYDROCHLORIDE
     Indication: ERECTILE DYSFUNCTION
     Dosage: 20 MG, CYCLIC: ONCE A WEEK
     Dates: start: 20060510, end: 20070307
  2. FLOMAX [Concomitant]
     Active Substance: TAMSULOSIN HYDROCHLORIDE
     Indication: BENIGN PROSTATIC HYPERPLASIA
     Dosage: 0.4 MG, DAILY
     Dates: start: 20070511, end: 20121017
  3. LEVITRA [Suspect]
     Active Substance: VARDENAFIL HYDROCHLORIDE
     Dosage: 20 MG, CYCLIC: ONCE A WEEK
     Dates: start: 20071123, end: 20071220
  4. CRESTOR [Concomitant]
     Active Substance: ROSUVASTATIN CALCIUM
     Indication: HYPERLIPIDAEMIA
     Dosage: UNK
     Dates: start: 20121017, end: 20151210
  5. LOSARTAN. [Concomitant]
     Active Substance: LOSARTAN
     Indication: HYPERTENSION
     Dosage: UNK
     Dates: start: 20111222, end: 20151210
  6. SERTRALINE [Concomitant]
     Active Substance: SERTRALINE HYDROCHLORIDE
     Indication: DEPRESSION
     Dosage: UNK
     Dates: start: 20120417, end: 20151210
  7. LEVEMIR [Concomitant]
     Active Substance: INSULIN DETEMIR
     Indication: DIABETES MELLITUS
     Dosage: UNK
     Dates: start: 20120717, end: 20151210
  8. ZOLPIDEM [Concomitant]
     Active Substance: ZOLPIDEM TARTRATE
     Indication: INSOMNIA
     Dosage: UNK
     Dates: start: 20120402, end: 20151210
  9. ROPINIROLE. [Concomitant]
     Active Substance: ROPINIROLE
     Indication: RESTLESS LEGS SYNDROME
     Dosage: UNK
     Dates: start: 20120117, end: 20151210
  10. VIAGRA [Suspect]
     Active Substance: SILDENAFIL CITRATE
     Indication: ERECTILE DYSFUNCTION
     Dosage: 100 MG, CYCLIC: TWICE A WEEK
     Route: 048
     Dates: start: 20021212, end: 20130201
  11. CIALIS [Suspect]
     Active Substance: TADALAFIL
     Dosage: 20 MG, CYCLIC: TWICE A WEEK
     Dates: start: 20041214, end: 20041230
  12. GABAPENTIN. [Concomitant]
     Active Substance: GABAPENTIN
     Indication: DIABETES MELLITUS
     Dosage: UNK
     Dates: start: 20121017, end: 20151210
  13. TRAZODONE [Concomitant]
     Active Substance: TRAZODONE HYDROCHLORIDE
     Indication: DEPRESSION
     Dosage: UNK
     Dates: start: 20111203, end: 20151210

REACTIONS (2)
  - Pain [Recovered/Resolved]
  - Malignant melanoma [Fatal]

NARRATIVE: CASE EVENT DATE: 20070531
